FAERS Safety Report 18886020 (Version 3)
Quarter: 2021Q2

REPORT INFORMATION
  Report Type: Spontaneous
  Country: US (occurrence: US)
  Receive Date: 20210212
  Receipt Date: 20210524
  Transmission Date: 20210717
  Serious: No
  Sender: FDA-Public Use
  Company Number: US-SA-2021SA043184

PATIENT
  Age: 59 Year
  Sex: Male

DRUGS (1)
  1. DUPIXENT [Suspect]
     Active Substance: DUPILUMAB
     Indication: ASTHMA
     Dosage: 300 MG, QOW
     Route: 058
     Dates: start: 202012

REACTIONS (4)
  - Weight increased [Unknown]
  - Product use issue [Unknown]
  - Poor quality sleep [Unknown]
  - Dizziness [Unknown]

NARRATIVE: CASE EVENT DATE: 202012
